FAERS Safety Report 15362992 (Version 1)
Quarter: 2018Q3

REPORT INFORMATION
  Report Type: Other
  Country: CN (occurrence: CN)
  Receive Date: 20180907
  Receipt Date: 20180907
  Transmission Date: 20181010
  Serious: Yes (Other)
  Sender: FDA-Public Use
  Company Number: CN-ARALEZ PHARMACEUTICALS R+D INC.-2018-ARA-002080

PATIENT
  Sex: Male

DRUGS (4)
  1. METOPROLOL SUCCINATE. [Suspect]
     Active Substance: METOPROLOL SUCCINATE
     Indication: MYOCARDIAL ISCHAEMIA
  2. DESLANOSIDE [Suspect]
     Active Substance: DESLANOSIDE
     Dosage: 0.1 MG, QD
     Route: 042
     Dates: start: 20180703
  3. METOPROLOL SUCCINATE. [Suspect]
     Active Substance: METOPROLOL SUCCINATE
     Indication: HEART RATE ABNORMAL
     Dosage: 23.75 MG, QD
     Route: 048
     Dates: start: 20180628, end: 20180705
  4. DESLANOSIDE [Suspect]
     Active Substance: DESLANOSIDE
     Indication: CARDIAC DISORDER
     Dosage: 0.1 MG, BID
     Route: 042
     Dates: start: 20180628, end: 20180702

REACTIONS (1)
  - Atrioventricular block [Unknown]
